FAERS Safety Report 18246457 (Version 2)
Quarter: 2020Q4

REPORT INFORMATION
  Report Type: Spontaneous
  Country: US (occurrence: US)
  Receive Date: 20200909
  Receipt Date: 20201117
  Transmission Date: 20210113
  Serious: No
  Sender: FDA-Public Use
  Company Number: US-JNJFOC-20200909781

PATIENT
  Age: 35 Year
  Sex: Male
  Weight: 128.94 kg

DRUGS (4)
  1. AMBIEN [Concomitant]
     Active Substance: ZOLPIDEM TARTRATE
     Indication: SLEEP DISORDER THERAPY
     Dates: start: 20200813
  2. VRAYLAR [Concomitant]
     Active Substance: CARIPRAZINE
     Indication: DEPRESSION
     Dates: start: 20200309
  3. FETZIMA [Concomitant]
     Active Substance: LEVOMILNACIPRAN HYDROCHLORIDE
     Indication: DEPRESSION
     Dates: start: 20200430
  4. SPRAVATO [Suspect]
     Active Substance: ESKETAMINE
     Indication: DEPRESSION
     Dates: start: 20200903

REACTIONS (4)
  - Pain in jaw [Recovered/Resolved]
  - Blood pressure decreased [Recovered/Resolved]
  - Dehydration [Recovered/Resolved]
  - Blood glucose decreased [Recovered/Resolved]

NARRATIVE: CASE EVENT DATE: 20200903
